FAERS Safety Report 25888806 (Version 1)
Quarter: 2025Q4

REPORT INFORMATION
  Report Type: Spontaneous
  Country: US (occurrence: US)
  Receive Date: 20251007
  Receipt Date: 20251007
  Transmission Date: 20260118
  Serious: Yes (Other)
  Sender: ACCORD
  Company Number: US-MLMSERVICE-20250918-PI645182-00158-4

PATIENT
  Age: 7 Decade
  Sex: Male

DRUGS (16)
  1. FLUOROURACIL [Suspect]
     Active Substance: FLUOROURACIL
     Indication: Adenocarcinoma gastric
     Dosage: 4 CYCLES, EVERY 14 DAYS
     Dates: start: 2023
  2. OXALIPLATIN [Suspect]
     Active Substance: OXALIPLATIN
     Indication: Adenocarcinoma gastric
     Dosage: 4 CYCLES, EVERY 14 DAYS
     Dates: start: 2023
  3. LEUCOVORIN [Suspect]
     Active Substance: LEUCOVORIN\LEUCOVORIN CALCIUM
     Indication: Adenocarcinoma gastric
     Dosage: 4 CYCLES, EVERY 14 DAYS
     Dates: start: 2023
  4. NIVOLUMAB [Suspect]
     Active Substance: NIVOLUMAB
     Indication: Adenocarcinoma gastric
     Dosage: 4 CYCLES, EVERY 14 DAYS
  5. OXALIPLATIN [Suspect]
     Active Substance: OXALIPLATIN
     Indication: Metastases to bone
     Dosage: 4 CYCLES, EVERY 14 DAYS
     Dates: start: 2023
  6. NIVOLUMAB [Suspect]
     Active Substance: NIVOLUMAB
     Indication: Metastases to bone
     Dosage: 4 CYCLES, EVERY 14 DAYS
  7. FLUOROURACIL [Suspect]
     Active Substance: FLUOROURACIL
     Indication: Metastases to skin
     Dosage: 4 CYCLES, EVERY 14 DAYS
     Dates: start: 2023
  8. FLUOROURACIL [Suspect]
     Active Substance: FLUOROURACIL
     Indication: Adenocarcinoma gastric recurrent
     Dosage: 4 CYCLES, EVERY 14 DAYS
     Dates: start: 2023
  9. OXALIPLATIN [Suspect]
     Active Substance: OXALIPLATIN
     Indication: Metastases to skin
     Dosage: 4 CYCLES, EVERY 14 DAYS
     Dates: start: 2023
  10. OXALIPLATIN [Suspect]
     Active Substance: OXALIPLATIN
     Indication: Adenocarcinoma gastric recurrent
     Dosage: 4 CYCLES, EVERY 14 DAYS
     Dates: start: 2023
  11. LEUCOVORIN [Suspect]
     Active Substance: LEUCOVORIN\LEUCOVORIN CALCIUM
     Indication: Metastases to skin
     Dosage: 4 CYCLES, EVERY 14 DAYS
     Dates: start: 2023
  12. LEUCOVORIN [Suspect]
     Active Substance: LEUCOVORIN\LEUCOVORIN CALCIUM
     Indication: Adenocarcinoma gastric recurrent
     Dosage: 4 CYCLES, EVERY 14 DAYS
     Dates: start: 2023
  13. NIVOLUMAB [Suspect]
     Active Substance: NIVOLUMAB
     Indication: Metastases to skin
     Dosage: 4 CYCLES, EVERY 14 DAYS
  14. NIVOLUMAB [Suspect]
     Active Substance: NIVOLUMAB
     Indication: Adenocarcinoma gastric recurrent
     Dosage: 4 CYCLES, EVERY 14 DAYS
  15. LEUCOVORIN [Suspect]
     Active Substance: LEUCOVORIN\LEUCOVORIN CALCIUM
     Indication: Metastases to bone
     Dosage: 4 CYCLES, EVERY 14 DAYS
     Dates: start: 2023
  16. FLUOROURACIL [Suspect]
     Active Substance: FLUOROURACIL
     Indication: Metastases to bone
     Dosage: 4 CYCLES, EVERY 14 DAYS
     Dates: start: 2023

REACTIONS (3)
  - Nausea [Recovering/Resolving]
  - Herpes zoster [Recovered/Resolved]
  - Off label use [Unknown]

NARRATIVE: CASE EVENT DATE: 20230101
